FAERS Safety Report 13760481 (Version 1)
Quarter: 2017Q3

REPORT INFORMATION
  Report Type: Spontaneous
  Country: DE (occurrence: DE)
  Receive Date: 20170717
  Receipt Date: 20170717
  Transmission Date: 20171127
  Serious: Yes (Other)
  Sender: FDA-Public Use
  Company Number: DE-009507513-1707DEU002588

PATIENT
  Age: 62 Year
  Sex: Female

DRUGS (2)
  1. KEYTRUDA [Suspect]
     Active Substance: PEMBROLIZUMAB
     Dosage: 92.5 MG
     Route: 042
     Dates: start: 20170607
  2. KEYTRUDA [Suspect]
     Active Substance: PEMBROLIZUMAB
     Indication: BRONCHIAL CARCINOMA
     Dosage: 92.5 MG
     Route: 042
     Dates: start: 20170607, end: 2017

REACTIONS (4)
  - Autoimmune colitis [Not Recovered/Not Resolved]
  - Diarrhoea [Not Recovered/Not Resolved]
  - Nephritis [Not Recovered/Not Resolved]
  - Blood creatinine increased [Not Recovered/Not Resolved]

NARRATIVE: CASE EVENT DATE: 20170609
